FAERS Safety Report 13060278 (Version 2)
Quarter: 2016Q4

REPORT INFORMATION
  Report Type: Spontaneous
  Country: SE (occurrence: SE)
  Receive Date: 20161223
  Receipt Date: 20161228
  Transmission Date: 20170207
  Serious: Yes (Life-Threatening)
  Sender: FDA-Public Use
  Company Number: SE-BAUSCH-BL-2016-031843

PATIENT
  Age: 52 Year
  Sex: Male
  Weight: 82 kg

DRUGS (1)
  1. LOCOID [Suspect]
     Active Substance: HYDROCORTISONE BUTYRATE
     Indication: ABSCESS SOFT TISSUE
     Dosage: 1 MG/G
     Route: 003
     Dates: start: 2016, end: 2016

REACTIONS (8)
  - Muscular weakness [Recovered/Resolved]
  - Dyspnoea [Recovered/Resolved]
  - Hypoaesthesia [Recovered/Resolved]
  - Off label use [Unknown]
  - Eyelid oedema [Recovered/Resolved]
  - Chills [Recovered/Resolved]
  - Lip swelling [Recovered/Resolved]
  - Pharyngeal oedema [Recovered/Resolved]

NARRATIVE: CASE EVENT DATE: 2016
